FAERS Safety Report 14015421 (Version 1)
Quarter: 2017Q3

REPORT INFORMATION
  Report Type: Spontaneous
  Country: PT (occurrence: PT)
  Receive Date: 20170927
  Receipt Date: 20170927
  Transmission Date: 20171128
  Serious: Yes (Other)
  Sender: FDA-Public Use
  Company Number: PT-CONCORDIA PHARMACEUTICALS INC.-GSH201709-005533

PATIENT
  Age: 23 Year
  Sex: Female

DRUGS (17)
  1. METHYLPREDNISOLONE. [Suspect]
     Active Substance: METHYLPREDNISOLONE
  2. HYDROXYZINE [Suspect]
     Active Substance: HYDROXYZINE HYDROCHLORIDE
  3. NIMESULIDE [Suspect]
     Active Substance: NIMESULIDE
  4. DEFLAZACORT [Suspect]
     Active Substance: DEFLAZACORT
  5. PARACETAMOL [Suspect]
     Active Substance: ACETAMINOPHEN
  6. HYDROCORTISONE. [Suspect]
     Active Substance: HYDROCORTISONE
  7. IBUPROFEN. [Suspect]
     Active Substance: IBUPROFEN
  8. PREDNISOLONE. [Suspect]
     Active Substance: PREDNISOLONE
  9. LORATADINE. [Suspect]
     Active Substance: LORATADINE
  10. CETIRIZINE [Suspect]
     Active Substance: CETIRIZINE HYDROCHLORIDE
  11. MONTELUKAST [Suspect]
     Active Substance: MONTELUKAST SODIUM
  12. EBASTINE [Suspect]
     Active Substance: EBASTINE
  13. DESLORATADINE. [Suspect]
     Active Substance: DESLORATADINE
  14. DIMETINDENE [Suspect]
     Active Substance: DIMETHINDENE
  15. DEXAMETHASONE. [Suspect]
     Active Substance: DEXAMETHASONE
  16. CLEMASTINE [Suspect]
     Active Substance: CLEMASTINE
  17. FLURBIPROFEN. [Suspect]
     Active Substance: FLURBIPROFEN

REACTIONS (3)
  - Angioedema [Unknown]
  - Urticaria [Unknown]
  - Drug reaction with eosinophilia and systemic symptoms [Unknown]
